FAERS Safety Report 19110860 (Version 1)
Quarter: 2021Q2

REPORT INFORMATION
  Report Type: Spontaneous
  Country: FR (occurrence: FR)
  Receive Date: 20210409
  Receipt Date: 20210409
  Transmission Date: 20210717
  Serious: Yes (Other)
  Sender: FDA-Public Use
  Company Number: FR-TEVA-2021-FR-1897250

PATIENT
  Age: 91 Year
  Sex: Male
  Weight: 70 kg

DRUGS (13)
  1. DONEPEZIL. [Suspect]
     Active Substance: DONEPEZIL
     Indication: DEMENTIA ALZHEIMER^S TYPE
     Dosage: 10 MILLIGRAM DAILY;
     Route: 065
  2. AMLODIPINE [Suspect]
     Active Substance: AMLODIPINE BESYLATE
     Indication: HYPERTENSION
     Dosage: 5 MILLIGRAM DAILY;
     Route: 065
  3. PRAVASTATIN. [Suspect]
     Active Substance: PRAVASTATIN
     Indication: HYPERCHOLESTEROLAEMIA
     Dosage: 40 MILLIGRAM DAILY;
     Route: 065
  4. ROPINIROLE. [Suspect]
     Active Substance: ROPINIROLE
     Indication: PARKINSON^S DISEASE
     Dosage: 4.5 MILLIGRAM DAILY;
     Route: 065
  5. CALCIUM [Suspect]
     Active Substance: CALCIUM
     Dosage: 1 GRAM DAILY;
     Route: 065
  6. FUROSEMIDE. [Suspect]
     Active Substance: FUROSEMIDE
     Indication: HYPERTENSION
     Dosage: 20 MILLIGRAM DAILY;
     Route: 065
  7. CLOPIDOGREL [Suspect]
     Active Substance: CLOPIDOGREL BISULFATE
     Indication: CORONARY ARTERY DISEASE
     Dosage: 75 MILLIGRAM DAILY;
     Route: 065
  8. IRON SALTS [IRON] [Suspect]
     Active Substance: IRON
     Indication: ANAEMIA
     Route: 065
  9. VITAMIN D [Suspect]
     Active Substance: VITAMIN D NOS
     Dosage: 800 IU (INTERNATIONAL UNIT) DAILY;
     Route: 065
  10. MACROGOL 3350 [Suspect]
     Active Substance: POLYETHYLENE GLYCOL 3350
     Indication: CONSTIPATION
     Dosage: 1 DOSAGE FORMS DAILY;
     Route: 065
  11. ALFUZOSIN LP [Suspect]
     Active Substance: ALFUZOSIN
     Indication: PROSTATIC ADENOMA
     Dosage: 10 MILLIGRAM DAILY; IN THE EVENING
     Route: 065
  12. ESCITALOPRAM [Suspect]
     Active Substance: ESCITALOPRAM OXALATE
     Indication: DEPRESSION
     Dosage: 20 MILLIGRAM DAILY;
     Route: 065
  13. TRANSDERMAL PERCUTANEOUS TRINITRINE [Suspect]
     Active Substance: NITROGLYCERIN
     Indication: CORONARY ARTERY DISEASE
     Dosage: 110 MILLIGRAM DAILY;
     Route: 062

REACTIONS (7)
  - Hypokalaemia [Unknown]
  - Heart rate decreased [Unknown]
  - Fall [Unknown]
  - Behaviour disorder [Unknown]
  - Myalgia [Unknown]
  - Malaise [Unknown]
  - Orthostatic hypotension [Unknown]
